FAERS Safety Report 5474511-4 (Version None)
Quarter: 2007Q4

REPORT INFORMATION
  Report Type: 
  Country: None (occurrence: None)
  Receive Date: 20071002
  Receipt Date: 20070928
  Transmission Date: 20080405
  Serious: Yes (Life-Threatening)
  Sender: FDA-Public Use
  Company Number: JP-BOEHRINGER INGELHEIM PHARMACEUTICALS, INC.-2005-BP-18647NB

PATIENT
  Sex: Female

DRUGS (4)
  1. BI-SIFROL TABLETS [Suspect]
     Indication: PARKINSON'S DISEASE
     Route: 048
     Dates: start: 20050604, end: 20051015
  2. COVERSYL (PERINODPRIL ERBUMINE) [Concomitant]
     Indication: HYPERTENSION
     Route: 048
     Dates: end: 20051015
  3. CABERGOLINE [Concomitant]
     Indication: PARKINSON'S DISEASE
     Route: 048
     Dates: start: 20041211, end: 20051015
  4. NEODOPASTON (LEVODOPA) [Concomitant]
     Indication: PARKINSON'S DISEASE
     Route: 048
     Dates: start: 20050827, end: 20051015

REACTIONS (5)
  - FALL [None]
  - FRACTURE [None]
  - PLEURAL HAEMORRHAGE [None]
  - SOMNOLENCE [None]
  - THERMAL BURN [None]
